FAERS Safety Report 17434237 (Version 3)
Quarter: 2020Q2

REPORT INFORMATION
  Report Type: Spontaneous
  Country: US (occurrence: US)
  Receive Date: 20200219
  Receipt Date: 20200518
  Transmission Date: 20200713
  Serious: No
  Sender: FDA-Public Use
  Company Number: US-PFIZER INC-2020069559

PATIENT
  Age: 49 Year
  Sex: Female

DRUGS (3)
  1. XELJANZ XR [Suspect]
     Active Substance: TOFACITINIB CITRATE
     Indication: RHEUMATOID ARTHRITIS
     Dosage: 11 MG, DAILY
     Route: 048
     Dates: start: 20200211
  2. RASUVO [Concomitant]
     Active Substance: METHOTREXATE SODIUM
     Dosage: UNK
  3. PLAQUENIL [HYDROXYCHLOROQUINE PHOSPHATE] [Concomitant]
     Active Substance: HYDROXYCHLOROQUINE DIPHOSPHATE
     Dosage: UNK

REACTIONS (7)
  - C-reactive protein increased [Unknown]
  - Decreased appetite [Unknown]
  - Weight increased [Unknown]
  - Balance disorder [Unknown]
  - Blood cholesterol increased [Unknown]
  - Fatigue [Unknown]
  - Diarrhoea [Unknown]

NARRATIVE: CASE EVENT DATE: 2020
